FAERS Safety Report 7591727-1 (Version None)
Quarter: 2011Q3

REPORT INFORMATION
  Report Type: 
  Country: None (occurrence: None)
  Receive Date: 20110706
  Receipt Date: 20110620
  Transmission Date: 20111222
  Serious: Yes (Hospitalization, Other)
  Sender: FDA-Public Use
  Company Number: US-BAYER-2011-022061

PATIENT
  Age: 23 Year
  Sex: Female
  Weight: 58.957 kg

DRUGS (16)
  1. OXYCODONE HCL [Concomitant]
     Dosage: UNK
     Dates: start: 20051128
  2. ACETAMINOPHEN [Concomitant]
  3. FLONASE [Concomitant]
     Dosage: UNK UNK, PRN
     Route: 045
  4. YASMIN [Suspect]
     Indication: ACNE
  5. CEPHALEXIN [Concomitant]
     Dosage: 500 MG, UNK
     Dates: start: 20060417
  6. SEROQUEL [Concomitant]
     Dosage: 300 MG, UNK
     Dates: start: 20081125
  7. PLAN B [Concomitant]
     Dosage: UNK UNK, PRN
     Route: 048
     Dates: start: 20021219
  8. YASMIN [Suspect]
     Indication: CONTRACEPTION
     Dosage: UNK
     Dates: start: 20010101, end: 20090101
  9. YASMIN [Suspect]
     Indication: SKIN DISORDER
  10. PROPRANOLOL [Concomitant]
     Dosage: 20 MG, UNK
     Dates: start: 20060427
  11. FLOMAX [Concomitant]
     Dosage: UNK
     Dates: start: 20090801
  12. YASMIN [Suspect]
     Indication: MENSTRUATION IRREGULAR
  13. PROMETHAZINE [Concomitant]
     Dosage: UNK
     Dates: start: 20041019
  14. PERCOCET [Concomitant]
     Dosage: UNK
     Dates: start: 20090801
  15. COGENTIN [Concomitant]
     Dosage: 2 MG, BID
  16. LEXAPRO [Concomitant]
     Dosage: 100 MG, UNK
     Dates: start: 20060929

REACTIONS (5)
  - CHOLECYSTITIS CHRONIC [None]
  - GALLBLADDER DISORDER [None]
  - PREGNANCY [None]
  - ABORTION SPONTANEOUS [None]
  - NEPHROLITHIASIS [None]
